FAERS Safety Report 8194155-3 (Version None)
Quarter: 2012Q1

REPORT INFORMATION
  Report Type: 
  Country: None (occurrence: None)
  Receive Date: 20120308
  Receipt Date: 20120301
  Transmission Date: 20120608
  Serious: Yes (Hospitalization)
  Sender: FDA-Public Use
  Company Number: US-ACTELION-A-NJ2011-57360

PATIENT

DRUGS (15)
  1. HYDROXYUREA [Concomitant]
  2. LOSARTAN POTASSIUM [Concomitant]
  3. TYVASO [Concomitant]
  4. ALLOPURINOL [Concomitant]
  5. CALCIUM + VITAMIN D [Concomitant]
  6. TRACLEER [Suspect]
     Indication: PULMONARY ARTERIAL HYPERTENSION
     Dosage: 62.5 MG, BID
     Route: 048
     Dates: start: 20070525
  7. LOVENOX [Concomitant]
  8. FLOVENT [Concomitant]
  9. SINGULAIR [Concomitant]
  10. FOLIC ACID [Concomitant]
  11. TRACLEER [Suspect]
     Dosage: 125 MG, BID
     Route: 048
  12. EXJADE [Concomitant]
  13. GLUCOSAMINE/CHONDROITIN [Concomitant]
  14. LASIX [Concomitant]
  15. OMEPRAZOLE [Concomitant]

REACTIONS (2)
  - OSTEONECROSIS [None]
  - HIP SURGERY [None]
